FAERS Safety Report 5612318-5 (Version None)
Quarter: 2008Q1

REPORT INFORMATION
  Report Type: 
  Country: None (occurrence: None)
  Receive Date: 20080201
  Receipt Date: 20080201
  Transmission Date: 20080703
  Serious: No
  Sender: FDA-Public Use
  Company Number: None

PATIENT
  Sex: Female

DRUGS (2)
  1. XELODA [Suspect]
     Indication: BREAST CANCER
     Dosage: 100G BID PO
     Route: 048
     Dates: start: 20070401
  2. TYKERB [Suspect]
     Dosage: 1250G QD PO
     Route: 048
     Dates: start: 20070401

REACTIONS (1)
  - FATIGUE [None]
